FAERS Safety Report 17015200 (Version 1)
Quarter: 2019Q4

REPORT INFORMATION
  Report Type: Report from Study
  Country: US (occurrence: US)
  Receive Date: 20191111
  Receipt Date: 20191111
  Transmission Date: 20200122
  Serious: Yes (Other)
  Sender: FDA-Public Use
  Company Number: NVSC2019US028728

PATIENT
  Sex: Female

DRUGS (1)
  1. AFINITOR [Suspect]
     Active Substance: EVEROLIMUS
     Indication: PARTIAL SEIZURES
     Dosage: 3 MG, QD (SOLUTION)
     Route: 048
     Dates: start: 20191003

REACTIONS (2)
  - Pyrexia [Unknown]
  - Respiratory syncytial virus infection [Unknown]
